FAERS Safety Report 5933711-7 (Version None)
Quarter: 2008Q4

REPORT INFORMATION
  Report Type: 
  Country: None (occurrence: None)
  Receive Date: 20081029
  Receipt Date: 20081023
  Transmission Date: 20090506
  Serious: Yes (Hospitalization)
  Sender: FDA-Public Use
  Company Number: PL-BRISTOL-MYERS SQUIBB COMPANY-14371660

PATIENT
  Age: 34 Year
  Sex: Male

DRUGS (3)
  1. AMIKACIN SULFATE [Suspect]
     Indication: PNEUMONIA
  2. AMOXICILLIN AND CLAVULANATE POTASSIUM [Suspect]
     Indication: PNEUMONIA
  3. CLINDAMYCIN HCL [Suspect]
     Indication: PNEUMONIA

REACTIONS (1)
  - DRUG INEFFECTIVE [None]
